FAERS Safety Report 11751433 (Version 2)
Quarter: 2015Q4

REPORT INFORMATION
  Report Type: Spontaneous
  Country: US (occurrence: US)
  Receive Date: 20151118
  Receipt Date: 20151223
  Transmission Date: 20160304
  Serious: Yes (Other)
  Sender: FDA-Public Use
  Company Number: US-NOVOPROD-465996

PATIENT
  Age: 81 Year
  Sex: Male
  Weight: 61.22 kg

DRUGS (6)
  1. NOVOLOG [Suspect]
     Active Substance: INSULIN ASPART
     Dosage: SLIDING SCALE (4 U, 6 U, OR 8 U DEPENDING ON BLOOD SUGAR READING, BEFORE MEALS)
     Route: 058
  2. NOVOLOG [Suspect]
     Active Substance: INSULIN ASPART
     Dosage: SLIDING SCALE (4 U, 6 U, OR 8 U DEPENDING ON BLOOD SUGAR READING, BEFORE MEALS)
     Route: 058
  3. NOVOLOG [Suspect]
     Active Substance: INSULIN ASPART
     Dosage: SLIDING SCALE (4 U, 6 U, OR 8 U DEPENDING ON BLOOD SUGAR READING, BEFORE MEALS)
     Route: 058
  4. NOVOLOG [Suspect]
     Active Substance: INSULIN ASPART
     Dosage: SLIDING SCALE (4 U, 6 U, OR 8 U DEPENDING ON BLOOD SUGAR READING, BEFORE MEALS)
     Route: 058
  5. LANTUS [Concomitant]
     Active Substance: INSULIN GLARGINE
     Indication: TYPE 2 DIABETES MELLITUS
  6. NOVOLOG [Suspect]
     Active Substance: INSULIN ASPART
     Indication: TYPE 2 DIABETES MELLITUS
     Dosage: SLIDING SCALE (4 U, 6 U, OR 8 U DEPENDING ON BLOOD SUGAR READING, BEFORE MEALS)
     Route: 058

REACTIONS (4)
  - Loss of consciousness [Recovered/Resolved]
  - Loss of consciousness [Recovered/Resolved]
  - Dizziness [Not Recovered/Not Resolved]
  - Loss of consciousness [Recovered/Resolved]

NARRATIVE: CASE EVENT DATE: 2014
